FAERS Safety Report 23271985 (Version 1)
Quarter: 2023Q4

REPORT INFORMATION
  Report Type: Spontaneous
  Country: FR (occurrence: FR)
  Receive Date: 20231207
  Receipt Date: 20231207
  Transmission Date: 20240110
  Serious: Yes (Other)
  Sender: FDA-Public Use
  Company Number: FR-OPELLA-2023OHG015912

PATIENT
  Age: 67 Year
  Sex: Female

DRUGS (1)
  1. ACETAMINOPHEN [Suspect]
     Active Substance: ACETAMINOPHEN
     Indication: Product used for unknown indication
     Dosage: LESS THAN 4 HOURS
     Route: 065

REACTIONS (3)
  - Hepatotoxicity [Unknown]
  - Overdose [Unknown]
  - Inappropriate schedule of product administration [Unknown]
